FAERS Safety Report 11872485 (Version 1)
Quarter: 2015Q4

REPORT INFORMATION
  Report Type: Spontaneous
  Country: GB (occurrence: GB)
  Receive Date: 20151228
  Receipt Date: 20151228
  Transmission Date: 20160305
  Serious: Yes (Other)
  Sender: FDA-Public Use
  Company Number: GB-PFIZER INC-2015467075

PATIENT
  Age: 43 Year
  Sex: Female
  Weight: 62 kg

DRUGS (11)
  1. OMEPRAZOLE. [Concomitant]
     Active Substance: OMEPRAZOLE
     Dosage: 1 DF, 1X/DAY
     Dates: start: 20141015
  2. GABAPENTIN. [Suspect]
     Active Substance: GABAPENTIN
     Indication: NEURALGIA
     Dosage: UNK
     Route: 048
     Dates: start: 20150611
  3. CANESTEN [Concomitant]
     Active Substance: CLOTRIMAZOLE
     Dosage: 1 DF, 2X/DAY
     Dates: start: 20151022, end: 20151029
  4. IBUPROFEN. [Concomitant]
     Active Substance: IBUPROFEN
     Dosage: APPLY 3-4 TIMES/DAY
     Dates: start: 20151201
  5. CO-DYDRAMOL [Concomitant]
     Active Substance: ACETAMINOPHEN\DIHYDROCODEINE
     Dosage: 1 OR 2, 4X/DAY
     Dates: start: 20150922, end: 20151006
  6. COCODAMOL [Concomitant]
     Active Substance: ACETAMINOPHEN\CODEINE PHOSPHATE
     Dosage: 1 OR 2, 4X/DAY
     Dates: start: 20151201
  7. FLUOXETINE [Concomitant]
     Active Substance: FLUOXETINE HYDROCHLORIDE
     Dosage: 1 DF, 2X/DAY
     Dates: start: 20141015
  8. NAPROXEN. [Concomitant]
     Active Substance: NAPROXEN
     Dosage: 1 DF, 2X/DAY
     Dates: start: 20141015
  9. PREGABALIN. [Concomitant]
     Active Substance: PREGABALIN
     Dosage: TAKE AS DIRECTED BY NEUROLOGIST
     Dates: start: 20151207
  10. CLOTRIMAZOLE. [Concomitant]
     Active Substance: CLOTRIMAZOLE
     Dosage: 1 DF, 1X/DAY INSERT AT NIGHT
     Dates: start: 20151022, end: 20151025
  11. CODEINE PHOSPHATE [Concomitant]
     Active Substance: CODEINE PHOSPHATE
     Dosage: 1 DF (5 DOSES EVERY 4 HOURS)
     Dates: start: 20151215

REACTIONS (3)
  - Impaired work ability [Unknown]
  - Confusional state [Recovered/Resolved]
  - Dysphemia [Recovered/Resolved]

NARRATIVE: CASE EVENT DATE: 201512
